FAERS Safety Report 11826342 (Version 1)
Quarter: 2015Q4

REPORT INFORMATION
  Report Type: Spontaneous
  Country: US (occurrence: None)
  Receive Date: 20151210
  Receipt Date: 20151210
  Transmission Date: 20160305
  Serious: Yes (Other)
  Sender: FDA-Public Use
  Company Number: None

PATIENT
  Age: 77 Year
  Sex: Male

DRUGS (1)
  1. ZYTIGA [Suspect]
     Active Substance: ABIRATERONE ACETATE
     Indication: PROSTATE CANCER
     Route: 048

REACTIONS (6)
  - Abdominal discomfort [None]
  - Diarrhoea [None]
  - Sneezing [None]
  - Headache [None]
  - Oral pain [None]
  - Mucous stools [None]

NARRATIVE: CASE EVENT DATE: 201512
